FAERS Safety Report 4476620-5 (Version None)
Quarter: 2004Q4

REPORT INFORMATION
  Report Type: 
  Country: None (occurrence: None)
  Receive Date: 20041015
  Receipt Date: 20041015
  Transmission Date: 20050328
  Serious: Yes (Hospitalization)
  Sender: FDA-Public Use
  Company Number: None

PATIENT
  Age: 85 Year
  Sex: Male
  Weight: 52 kg

DRUGS (1)
  1. ZOSYN [Suspect]
     Indication: INFECTION
     Dosage: 3.375 GM   Q6 HOURS   INTRAVENOU
     Route: 042
     Dates: start: 20040830, end: 20040916

REACTIONS (1)
  - PLATELET COUNT DECREASED [None]
